FAERS Safety Report 5236083-9 (Version None)
Quarter: 2007Q1

REPORT INFORMATION
  Report Type: 
  Country: None (occurrence: None)
  Receive Date: 20070212
  Receipt Date: 20070130
  Transmission Date: 20070707
  Serious: Yes (Hospitalization)
  Sender: FDA-Public Use
  Company Number: CA-AMGEN-US203121

PATIENT
  Sex: Female

DRUGS (16)
  1. CINACALCET [Suspect]
     Indication: HYPERPARATHYROIDISM SECONDARY
     Route: 048
     Dates: start: 20060319, end: 20060926
  2. EFFEXOR [Concomitant]
  3. ANTIBIOTICS [Concomitant]
  4. TYLENOL W/ CODEINE NO. 3 [Concomitant]
  5. CALCIUM CARBONATE [Concomitant]
  6. KEFLEX [Concomitant]
  7. MOTILIUM [Concomitant]
  8. MAXERAN [Concomitant]
  9. FOLIC ACID [Concomitant]
  10. SYNTHROID [Concomitant]
  11. ATIVAN [Concomitant]
  12. MAGNESIUM [Concomitant]
  13. PARIET [Concomitant]
  14. COUMADIN [Concomitant]
  15. VITAMIN E [Concomitant]
  16. ALFACALCIDOL [Concomitant]

REACTIONS (3)
  - HYPOCALCAEMIA [None]
  - HYPOMAGNESAEMIA [None]
  - ORTHOSTATIC HYPOTENSION [None]
